FAERS Safety Report 6275981-4 (Version None)
Quarter: 2009Q3

REPORT INFORMATION
  Report Type: 
  Country: None (occurrence: None)
  Receive Date: 20090720
  Receipt Date: 20090710
  Transmission Date: 20100115
  Serious: Yes (Other)
  Sender: FDA-Public Use
  Company Number: 2009SP013324

PATIENT
  Age: 32 Year
  Sex: Female
  Weight: 65.7716 kg

DRUGS (9)
  1. CLARITIN [Suspect]
     Indication: EYE PRURITUS
     Dosage: 10 MG; QD; PO
     Route: 048
     Dates: start: 20090515, end: 20090518
  2. CLARITIN [Suspect]
     Indication: POSTNASAL DRIP
     Dosage: 10 MG; QD; PO
     Route: 048
     Dates: start: 20090515, end: 20090518
  3. CLARITIN [Suspect]
     Indication: SEASONAL ALLERGY
     Dosage: 10 MG; QD; PO
     Route: 048
     Dates: start: 20090515, end: 20090518
  4. CLARITIN [Suspect]
     Indication: SNEEZING
     Dosage: 10 MG; QD; PO
     Route: 048
     Dates: start: 20090515, end: 20090518
  5. LEVOTHYROXINE SODIUM [Concomitant]
  6. SPIRONOLACTONE [Concomitant]
  7. MULTI-VITAMIN [Concomitant]
  8. ASCORBIC ACID [Concomitant]
  9. MAXALT [Concomitant]

REACTIONS (5)
  - DRY MOUTH [None]
  - LIP DRY [None]
  - LIP SWELLING [None]
  - RASH [None]
  - SWOLLEN TONGUE [None]
